FAERS Safety Report 23785655 (Version 2)
Quarter: 2024Q2

REPORT INFORMATION
  Report Type: Other
  Country: DE (occurrence: DE)
  Receive Date: 20240425
  Receipt Date: 20240501
  Transmission Date: 20240716
  Serious: Yes (Hospitalization, Other)
  Sender: FDA-Public Use
  Company Number: DE-DENTSPLY-2024SCDP000112

PATIENT
  Age: 71 Year
  Sex: Male
  Weight: 64 kg

DRUGS (1)
  1. LIDOCAINE\PRILOCAINE [Suspect]
     Active Substance: LIDOCAINE\PRILOCAINE
     Indication: Local anaesthesia
     Dosage: UNK DOSE OF EMLA (2.5 % LIDOCAINE, 2.5 % PRILOCAINE) CREAM (PDF)
     Route: 061

REACTIONS (4)
  - Product administered at inappropriate site [Recovered/Resolved]
  - Cyanosis [None]
  - Methaemoglobinaemia [Recovered/Resolved]
  - Systemic toxicity [Recovering/Resolving]
